FAERS Safety Report 8535447-5 (Version None)
Quarter: 2012Q3

REPORT INFORMATION
  Report Type: 
  Country: None (occurrence: None)
  Receive Date: 20120725
  Receipt Date: 20120713
  Transmission Date: 20120928
  Serious: Yes (Hospitalization)
  Sender: FDA-Public Use
  Company Number: FR-BRISTOL-MYERS SQUIBB COMPANY-16773624

PATIENT
  Age: 66 Year
  Sex: Female

DRUGS (3)
  1. AVASTIN [Suspect]
     Indication: BREAST CANCER METASTATIC
     Dosage: 25 MG/ML SOLUTION, INF
     Dates: start: 20111001, end: 20120301
  2. ZOMETA [Suspect]
     Indication: BREAST CANCER METASTATIC
     Route: 042
     Dates: start: 20111001, end: 20120301
  3. TAXOL [Suspect]
     Indication: BREAST CANCER METASTATIC
     Dosage: INF
     Route: 042
     Dates: start: 20111001, end: 20120301

REACTIONS (1)
  - CHOLESTASIS [None]
